FAERS Safety Report 20803052 (Version 9)
Quarter: 2022Q4

REPORT INFORMATION
  Report Type: Report from Study
  Country: SE (occurrence: SE)
  Receive Date: 20220509
  Receipt Date: 20221208
  Transmission Date: 20230113
  Serious: Yes (Other)
  Sender: FDA-Public Use
  Company Number: SE-JNJFOC-20220507627

PATIENT
  Age: 32 Year
  Sex: Female
  Weight: 57.7 kg

DRUGS (17)
  1. SPRAVATO [Suspect]
     Active Substance: ESKETAMINE
     Indication: Depression
     Dosage: 56 MG (2 DEVICES), 3 TOTAL DOSES
     Dates: start: 20220419, end: 20220426
  2. SPRAVATO [Suspect]
     Active Substance: ESKETAMINE
     Dosage: 84 MG (3 DEVICES), 6 TOTAL DOSES
     Dates: start: 20220428, end: 20220518
  3. SPRAVATO [Suspect]
     Active Substance: ESKETAMINE
     Dosage: 56 MG (2 DEVICES), 1 TOTAL DOSES
     Dates: start: 20220524, end: 20220524
  4. SPRAVATO [Suspect]
     Active Substance: ESKETAMINE
     Dosage: 84 MG (3 DEVICES), 15 TOTAL DOSES
     Dates: start: 20220527, end: 20220809
  5. SPRAVATO [Suspect]
     Active Substance: ESKETAMINE
     Dosage: 84 MG (3 DEVICES)
     Dates: start: 20220830, end: 20220830
  6. SPRAVATO [Suspect]
     Active Substance: ESKETAMINE
     Dosage: 84 MG (3 DEVICES)
     Dates: start: 20220901, end: 20220901
  7. SPRAVATO [Suspect]
     Active Substance: ESKETAMINE
     Dosage: 84 MG (3 DEVICES)
     Dates: start: 20220906, end: 20220906
  8. SPRAVATO [Suspect]
     Active Substance: ESKETAMINE
     Dosage: 84 MG (3 DEVICES)
     Dates: start: 20220908, end: 20220908
  9. SPRAVATO [Suspect]
     Active Substance: ESKETAMINE
     Dosage: 84 MG (3 DEVICES)
     Dates: start: 20220913, end: 20220913
  10. SPRAVATO [Suspect]
     Active Substance: ESKETAMINE
     Dosage: 84 MG (3 DEVICES)
     Dates: start: 20220915, end: 20220915
  11. SPRAVATO [Suspect]
     Active Substance: ESKETAMINE
     Dosage: 84 MG (3 DEVICES)
     Dates: start: 20220920, end: 20220920
  12. SPRAVATO [Suspect]
     Active Substance: ESKETAMINE
     Dosage: 84 MG (3 DEVICES)
     Dates: start: 20220922, end: 20220922
  13. SPRAVATO [Suspect]
     Active Substance: ESKETAMINE
     Dosage: 84 MG (3 DEVICES)
     Dates: start: 20220927, end: 20220927
  14. VENLAFAXINE [Suspect]
     Active Substance: VENLAFAXINE HYDROCHLORIDE
     Indication: Product used for unknown indication
     Route: 065
  15. LITHIUM SULFATE [Concomitant]
     Active Substance: LITHIUM SULFATE
  16. LITHIUM SULFATE [Concomitant]
     Active Substance: LITHIUM SULFATE
  17. LITHIUM SULFATE [Concomitant]
     Active Substance: LITHIUM SULFATE

REACTIONS (14)
  - Suicidal ideation [Recovered/Resolved]
  - Hypothyroidism [Recovering/Resolving]
  - Urine output increased [Recovering/Resolving]
  - Dyskinesia [Recovered/Resolved]
  - Epistaxis [Recovered/Resolved]
  - Nausea [Recovered/Resolved]
  - Dizziness [Recovered/Resolved]
  - Derealisation [Recovered/Resolved]
  - Euphoric mood [Recovered/Resolved]
  - Depression [Recovered/Resolved]
  - Anxiety [Not Recovered/Not Resolved]
  - Night sweats [Not Recovered/Not Resolved]
  - Feeling drunk [Recovered/Resolved]
  - Fatigue [Recovered/Resolved]

NARRATIVE: CASE EVENT DATE: 20220419
